FAERS Safety Report 23937164 (Version 1)
Quarter: 2024Q2

REPORT INFORMATION
  Report Type: Spontaneous
  Country: US (occurrence: None)
  Receive Date: 20240603
  Receipt Date: 20240603
  Transmission Date: 20240716
  Serious: Yes (Other)
  Sender: FDA-Public Use
  Company Number: None

PATIENT
  Age: 71 Year
  Sex: Female
  Weight: 112.5 kg

DRUGS (9)
  1. HYDROCHLOROTHIAZIDE\LOSARTAN [Suspect]
     Active Substance: HYDROCHLOROTHIAZIDE\LOSARTAN
     Indication: Hypertension
     Dosage: 1 TABLET DAILY ORAL
     Route: 048
  2. AMLODIPINE [Suspect]
     Active Substance: AMLODIPINE BESYLATE
     Indication: Hypertension
     Dosage: 1 TABLET DALY ORAL
     Route: 048
     Dates: start: 20240318
  3. EZETIMIBE [Suspect]
     Active Substance: EZETIMIBE
  4. ROSUVASTATIN [Suspect]
     Active Substance: ROSUVASTATIN
  5. CARVEDILOL [Suspect]
     Active Substance: CARVEDILOL
  6. IBUPROFEN [Suspect]
     Active Substance: IBUPROFEN
  7. LOSARTAN [Concomitant]
     Active Substance: LOSARTAN
  8. AMLODIPINE [Concomitant]
     Active Substance: AMLODIPINE BESYLATE
  9. MINERALS\VITAMINS [Concomitant]
     Active Substance: MINERALS\VITAMINS

REACTIONS (20)
  - Hypersensitivity [None]
  - Back pain [None]
  - Flank pain [None]
  - Burning sensation [None]
  - Pruritus [None]
  - Epistaxis [None]
  - Nasal congestion [None]
  - Peripheral swelling [None]
  - Joint swelling [None]
  - Bite [None]
  - Induration [None]
  - Insomnia [None]
  - Fat tissue increased [None]
  - Pain [None]
  - Pain in extremity [None]
  - Confusional state [None]
  - Alopecia [None]
  - Arthralgia [None]
  - Abnormal dreams [None]
  - Adverse drug reaction [None]
